FAERS Safety Report 22239020 (Version 2)
Quarter: 2023Q2

REPORT INFORMATION
  Report Type: Spontaneous
  Country: US (occurrence: None)
  Receive Date: 20230421
  Receipt Date: 20230518
  Transmission Date: 20230722
  Serious: Yes (Death)
  Sender: FDA-Public Use
  Company Number: US-ROCHE-3328535

PATIENT
  Sex: Female

DRUGS (3)
  1. OCREVUS [Suspect]
     Active Substance: OCRELIZUMAB
     Indication: Relapsing multiple sclerosis
     Dosage: ONGOING: NO
     Route: 065
  2. PRAMIPEXOLE [Concomitant]
     Active Substance: PRAMIPEXOLE
  3. TYSABRI [Concomitant]
     Active Substance: NATALIZUMAB

REACTIONS (1)
  - COVID-19 [Fatal]
